FAERS Safety Report 22343730 (Version 2)
Quarter: 2023Q2

REPORT INFORMATION
  Report Type: Report from Study
  Country: US (occurrence: US)
  Receive Date: 20230519
  Receipt Date: 20230621
  Transmission Date: 20230722
  Serious: Yes (Other)
  Sender: FDA-Public Use
  Company Number: US-ABBVIE-4768741

PATIENT
  Sex: Female

DRUGS (1)
  1. SKYRIZI [Suspect]
     Active Substance: RISANKIZUMAB-RZAA
     Indication: Product used for unknown indication
     Route: 058

REACTIONS (8)
  - Spinal operation [Recovering/Resolving]
  - Eye allergy [Recovering/Resolving]
  - Vaccination site erythema [Recovered/Resolved]
  - Breast cancer female [Recovering/Resolving]
  - Optic nerve disorder [Recovering/Resolving]
  - Vitreous floaters [Recovering/Resolving]
  - Cataract [Recovering/Resolving]
  - Pyrexia [Unknown]

NARRATIVE: CASE EVENT DATE: 20220101
